FAERS Safety Report 7850025-9 (Version None)
Quarter: 2011Q4

REPORT INFORMATION
  Report Type: 
  Country: None (occurrence: None)
  Receive Date: 20111024
  Receipt Date: 20111005
  Transmission Date: 20120403
  Serious: Yes (Congenital Anomaly)
  Sender: FDA-Public Use
  Company Number: ADR-UNK-037

PATIENT
  Age: 238 Day
  Sex: Male
  Weight: 1.55 kg

DRUGS (4)
  1. LAMIVUDINE + ZIDOVUDINE [Suspect]
     Indication: HIV INFECTION
     Dosage: BID + ORAL
     Route: 048
     Dates: start: 20091015
  2. VIREAD [Suspect]
  3. NEVIRAPINE [Suspect]
     Indication: HIV INFECTION
     Dosage: 400 MG/DAY + ORAL
     Route: 048
     Dates: start: 20091015, end: 20100215
  4. KALETRA [Suspect]

REACTIONS (2)
  - VENTRICULAR SEPTAL DEFECT [None]
  - FOETAL EXPOSURE DURING PREGNANCY [None]
